FAERS Safety Report 25600114 (Version 2)
Quarter: 2025Q3

REPORT INFORMATION
  Report Type: Spontaneous
  Country: EU (occurrence: EU)
  Receive Date: 20250724
  Receipt Date: 20250808
  Transmission Date: 20251021
  Serious: Yes (Other)
  Sender: TEVA
  Company Number: EU-TEVA-VS-3353081

PATIENT
  Age: 68 Year
  Sex: Female

DRUGS (18)
  1. SUMATRIPTAN [Suspect]
     Active Substance: SUMATRIPTAN
     Indication: Abdominal migraine
     Route: 065
  2. DICLOFENAC [Concomitant]
     Active Substance: DICLOFENAC
     Indication: Abdominal migraine
  3. ELETRIPTAN [Suspect]
     Active Substance: ELETRIPTAN
     Indication: Abdominal migraine
     Route: 065
  4. TOLFENAMIC ACID [Concomitant]
     Active Substance: TOLFENAMIC ACID
     Indication: Abdominal migraine
  5. CANDESARTAN CILEXETIL [Suspect]
     Active Substance: CANDESARTAN CILEXETIL
     Indication: Migraine prophylaxis
     Route: 065
  6. NAPROXEN [Concomitant]
     Active Substance: NAPROXEN
     Indication: Abdominal migraine
  7. LISINOPRIL [Suspect]
     Active Substance: LISINOPRIL
     Indication: Migraine prophylaxis
     Route: 065
  8. PROPRANOLOL [Suspect]
     Active Substance: PROPRANOLOL HYDROCHLORIDE
     Indication: Migraine prophylaxis
     Route: 065
  9. FREMANEZUMAB [Suspect]
     Active Substance: FREMANEZUMAB
     Indication: Abdominal migraine
     Route: 058
     Dates: start: 202401, end: 202404
  10. RIMEGEPANT [Concomitant]
     Active Substance: RIMEGEPANT
     Indication: Abdominal migraine
  11. RIZATRIPTAN [Suspect]
     Active Substance: RIZATRIPTAN
     Indication: Abdominal migraine
     Route: 065
  12. CODEINE [Concomitant]
     Active Substance: CODEINE
     Indication: Abdominal migraine
  13. EPTINEZUMAB [Suspect]
     Active Substance: EPTINEZUMAB
     Indication: Abdominal migraine
     Route: 042
     Dates: start: 202310
  14. LAMOTRIGINE [Suspect]
     Active Substance: LAMOTRIGINE
     Indication: Migraine prophylaxis
     Route: 065
  15. TOPIRAMATE [Suspect]
     Active Substance: TOPIRAMATE
     Indication: Product used for unknown indication
     Route: 065
  16. AMITRIPTYLINE [Suspect]
     Active Substance: AMITRIPTYLINE
     Indication: Product used for unknown indication
     Route: 065
  17. IMIPRAMINE [Suspect]
     Active Substance: IMIPRAMINE
     Indication: Product used for unknown indication
     Route: 065
  18. BACLOFEN [Suspect]
     Active Substance: BACLOFEN
     Indication: Product used for unknown indication
     Route: 065

REACTIONS (5)
  - Drug ineffective [Unknown]
  - Injection site hypersensitivity [Unknown]
  - Injection site swelling [Unknown]
  - Therapeutic response shortened [Unknown]
  - Adverse drug reaction [Unknown]
